FAERS Safety Report 4375708-7 (Version None)
Quarter: 2004Q2

REPORT INFORMATION
  Report Type: 
  Country: None (occurrence: None)
  Receive Date: 20040607
  Receipt Date: 20040123
  Transmission Date: 20050107
  Serious: Yes (Other)
  Sender: FDA-Public Use
  Company Number: ENT 2004-0013 (1)

PATIENT
  Sex: Male

DRUGS (3)
  1. COMTAN [Suspect]
     Indication: PARKINSON'S DISEASE
     Dosage: SEE IMAGE
     Route: 048
     Dates: start: 20010101
  2. SINEMET [Suspect]
     Indication: PARKINSON'S DISEASE
     Dosage: 1000-1200 MG DAILY ORAL
     Route: 048
  3. KINSON [Suspect]
     Indication: PARKINSON'S DISEASE

REACTIONS (9)
  - ANXIETY [None]
  - CHEST DISCOMFORT [None]
  - CONDITION AGGRAVATED [None]
  - DRUG EFFECT DECREASED [None]
  - DYSPNOEA [None]
  - MEDICATION ERROR [None]
  - MUSCLE SPASMS [None]
  - MUSCULOSKELETAL STIFFNESS [None]
  - PARKINSON'S DISEASE [None]
